FAERS Safety Report 5345850-2 (Version None)
Quarter: 2007Q2

REPORT INFORMATION
  Report Type: 
  Country: None (occurrence: None)
  Receive Date: 20070426
  Receipt Date: 20060718
  Transmission Date: 20071010
  Serious: Yes (Other)
  Sender: FDA-Public Use
  Company Number: US-JNJFOC-20060703700

PATIENT
  Sex: Female
  Weight: 112 kg

DRUGS (5)
  1. ULTRAM [Suspect]
     Indication: HERPES ZOSTER
     Dosage: ORAL
     Route: 048
  2. LYRICA (ANTIEPILEPTICS) [Concomitant]
  3. VICODIN [Concomitant]
  4. VALTREX [Concomitant]
  5. NEURONTIN [Concomitant]

REACTIONS (5)
  - BALANCE DISORDER [None]
  - DEPRESSION [None]
  - DIZZINESS [None]
  - HEART RATE INCREASED [None]
  - WEIGHT DECREASED [None]
